FAERS Safety Report 6496629-X (Version None)
Quarter: 2009Q4

REPORT INFORMATION
  Report Type: 
  Country: None (occurrence: None)
  Receive Date: 20091210
  Receipt Date: 20091202
  Transmission Date: 20100525
  Serious: Yes (Other)
  Sender: FDA-Public Use
  Company Number: 2009SP039790

PATIENT
  Age: 83 Year
  Sex: Male
  Weight: 75 kg

DRUGS (13)
  1. TEMODAL [Suspect]
     Indication: GLIOBLASTOMA MULTIFORME
     Dosage: 100 MG, QD, PO
     Route: 048
     Dates: start: 20091104, end: 20091123
  2. ZOFRAN [Concomitant]
  3. JUVELA N [Concomitant]
  4. ALOSENN [Concomitant]
  5. ZYLORIC [Concomitant]
  6. GASMOTIN [Concomitant]
  7. PRIMPERAN TAB [Concomitant]
  8. DIOVAN [Concomitant]
  9. FLUITRAN [Concomitant]
  10. NORVASC [Concomitant]
  11. MARZXULENE [Concomitant]
  12. CARNACULIN [Concomitant]
  13. MAGMITT [Concomitant]

REACTIONS (6)
  - ANAEMIA [None]
  - BLOOD PRESSURE SYSTOLIC DECREASED [None]
  - FAECES DISCOLOURED [None]
  - LOSS OF CONSCIOUSNESS [None]
  - MALLORY-WEISS SYNDROME [None]
  - REFLUX OESOPHAGITIS [None]
